FAERS Safety Report 9340800 (Version 3)
Quarter: 2013Q4

REPORT INFORMATION
  Report Type: Spontaneous
  Country: IT (occurrence: IT)
  Receive Date: 20130610
  Receipt Date: 20131015
  Transmission Date: 20140711
  Serious: Yes (Hospitalization)
  Sender: FDA-Public Use
  Company Number: IT-TEVA-410541ISR

PATIENT
  Age: 70 Year
  Sex: Male

DRUGS (1)
  1. GEMCITABINE [Suspect]
     Indication: PANCREATIC CARCINOMA
     Dosage: 1900 MILLIGRAM DAILY;
     Route: 042
     Dates: start: 20130101, end: 20130429

REACTIONS (4)
  - Oedema [Recovering/Resolving]
  - Renal failure acute [Recovering/Resolving]
  - Pleural effusion [Recovering/Resolving]
  - Haemangioma [Unknown]
